FAERS Safety Report 8203454-8 (Version None)
Quarter: 2012Q1

REPORT INFORMATION
  Report Type: 
  Country: None (occurrence: None)
  Receive Date: 20120313
  Receipt Date: 20120308
  Transmission Date: 20120608
  Serious: Yes (Death, Life-Threatening)
  Sender: FDA-Public Use
  Company Number: BE-BRISTOL-MYERS SQUIBB COMPANY-15241482

PATIENT
  Age: 68 Year
  Sex: Male
  Weight: 70 kg

DRUGS (13)
  1. MINOCYCLINE HCL [Concomitant]
     Indication: RASH
     Dates: start: 20100421
  2. ATROVENT [Concomitant]
     Dates: start: 20100527
  3. LYSOMUCIL [Concomitant]
     Dates: start: 20100325
  4. PEMETREXED DISODIUM [Suspect]
     Indication: HEAD AND NECK CANCER
     Dosage: DAY 1 EVERY 21 DAYS.LAST DOSE ON 27JUL10
     Route: 042
     Dates: start: 20100407
  5. VITAMIN B-12 [Concomitant]
  6. DEXAMETHASONE [Concomitant]
  7. CETUXIMAB [Suspect]
     Indication: HEAD AND NECK CANCER
     Dosage: LOADING DOSE ON DAY 1 OF 1 CYCLE,LAST DOSE ON 2AUG10 250 MG/M2 WEEKLY IV-ONG
     Route: 042
     Dates: start: 20100407
  8. FOLIC ACID [Concomitant]
  9. TERRAMYCIN V CAP [Concomitant]
     Indication: EYE INFECTION
     Dates: start: 20100723
  10. MOTILIUM [Concomitant]
     Dates: start: 20100603
  11. FRAXIPARINE [Concomitant]
     Dates: start: 20100629
  12. ZANTAC [Concomitant]
     Dates: start: 20100325
  13. CISPLATIN [Suspect]
     Indication: HEAD AND NECK CANCER
     Dosage: DAY 1 EVERY 21 DAYS.LAST DOSE ON 27JUL10
     Route: 042
     Dates: start: 20100407

REACTIONS (2)
  - SEPTIC SHOCK [None]
  - RESPIRATORY FAILURE [None]
